FAERS Safety Report 25995029 (Version 2)
Quarter: 2025Q4

REPORT INFORMATION
  Report Type: Spontaneous
  Country: EU (occurrence: EU)
  Receive Date: 20251104
  Receipt Date: 20251112
  Transmission Date: 20260117
  Serious: Yes (Life-Threatening, Hospitalization, Other)
  Sender: TORRENT PHARMA INC.
  Company Number: None

PATIENT
  Age: 59 Year
  Sex: Female
  Weight: 77 kg

DRUGS (2)
  1. METFORMIN [Suspect]
     Active Substance: METFORMIN HYDROCHLORIDE
     Indication: Diabetes mellitus
     Dosage: DAILY DOSE: 2 {DF} EVERY 1 DAY, 500 MG
     Route: 048
     Dates: start: 20250601, end: 20250829
  2. EMPAGLIFLOZIN [Suspect]
     Active Substance: EMPAGLIFLOZIN
     Indication: Diabetes mellitus
     Dosage: DAILY DOSE: 1 {DF} EVERY 1 DAY, 10 MG
     Route: 048
     Dates: start: 2022, end: 20250829

REACTIONS (4)
  - Lactic acidosis [Unknown]
  - Ketoacidosis [Unknown]
  - Acute kidney injury [Unknown]
  - Sepsis [Unknown]

NARRATIVE: CASE EVENT DATE: 20250829
